FAERS Safety Report 14921164 (Version 1)
Quarter: 2018Q2

REPORT INFORMATION
  Report Type: Report from Study
  Country: US (occurrence: US)
  Receive Date: 20180521
  Receipt Date: 20180521
  Transmission Date: 20180711
  Serious: No
  Sender: FDA-Public Use
  Company Number: US-AMGEN-USASL2018066401

PATIENT
  Age: 53 Year
  Sex: Female

DRUGS (1)
  1. ENBREL [Suspect]
     Active Substance: ETANERCEPT
     Indication: RHEUMATOID ARTHRITIS
     Dosage: 50 MG, QWK
     Route: 065

REACTIONS (5)
  - Peripheral swelling [Unknown]
  - Injection site warmth [Recovered/Resolved]
  - Injection site erythema [Recovered/Resolved]
  - Pain [Unknown]
  - Injection site pruritus [Recovered/Resolved]

NARRATIVE: CASE EVENT DATE: 2018
